FAERS Safety Report 6362105-8 (Version None)
Quarter: 2009Q3

REPORT INFORMATION
  Report Type: 
  Country: None (occurrence: None)
  Receive Date: 20090918
  Receipt Date: 20090916
  Transmission Date: 20100115
  Serious: Yes (Other)
  Sender: FDA-Public Use
  Company Number: DE-JNJCH-2009024129

PATIENT
  Age: 47 Year
  Sex: Female

DRUGS (2)
  1. REGAINE 2% [Suspect]
     Indication: ALOPECIA
     Dosage: TEXT:1ML ONCE
     Route: 061
     Dates: start: 20090822, end: 20090822
  2. RAMIPRIL [Concomitant]
     Indication: DRUG USE FOR UNKNOWN INDICATION
     Dosage: TEXT:5MG
     Route: 065

REACTIONS (5)
  - AGITATION [None]
  - ALOPECIA [None]
  - BLOOD PRESSURE INCREASED [None]
  - DEPRESSION [None]
  - NERVOUSNESS [None]
